FAERS Safety Report 9274723 (Version 1)
Quarter: 2013Q2

REPORT INFORMATION
  Report Type: Spontaneous
  Country: US (occurrence: None)
  Receive Date: 20130430
  Receipt Date: 20130430
  Transmission Date: 20140414
  Serious: Yes (Other)
  Sender: FDA-Public Use
  Company Number: None

PATIENT
  Age: 78 Year
  Sex: Male
  Weight: 86.64 kg

DRUGS (1)
  1. LUPRON [Suspect]
     Indication: PROSTATE CANCER METASTATIC
     Dosage: EVERY 4 MONTHS
     Route: 030
     Dates: start: 20130312, end: 20130429

REACTIONS (3)
  - Skin induration [None]
  - Injection site swelling [None]
  - Injection site pain [None]
